FAERS Safety Report 25943748 (Version 1)
Quarter: 2025Q4

REPORT INFORMATION
  Report Type: Spontaneous
  Country: CA (occurrence: CA)
  Receive Date: 20251021
  Receipt Date: 20251021
  Transmission Date: 20260118
  Serious: Yes (Hospitalization)
  Sender: PAREXEL
  Company Number: CA-TANVEX BIOPHARMA USA, INC-2025CA005616

PATIENT

DRUGS (2)
  1. NYPOZI [Suspect]
     Active Substance: FILGRASTIM-TXID
     Indication: Chemotherapy
     Dosage: UNK
     Route: 058
  2. NYPOZI [Suspect]
     Active Substance: FILGRASTIM-TXID
     Indication: Haematopoietic stem cell mobilisation

REACTIONS (1)
  - Adverse event [Unknown]
